FAERS Safety Report 7005218-X (Version None)
Quarter: 2010Q3

REPORT INFORMATION
  Report Type: 
  Country: None (occurrence: None)
  Receive Date: 20100920
  Receipt Date: 20100920
  Transmission Date: 20110219
  Serious: Yes (Hospitalization)
  Sender: FDA-Public Use
  Company Number: None

PATIENT
  Age: 79 Year
  Sex: Male
  Weight: 88 kg

DRUGS (1)
  1. ASPIRIN,BUTALBITAL,CAFFEINE [Suspect]
     Dosage: 325 MG EVERY DAY PO
     Route: 048
     Dates: start: 20100415, end: 20100525

REACTIONS (5)
  - DIZZINESS [None]
  - FATIGUE [None]
  - GASTROINTESTINAL HAEMORRHAGE [None]
  - NAUSEA [None]
  - VOMITING [None]
